FAERS Safety Report 12624285 (Version 1)
Quarter: 2016Q3

REPORT INFORMATION
  Report Type: Spontaneous
  Country: IE (occurrence: IE)
  Receive Date: 20160805
  Receipt Date: 20160805
  Transmission Date: 20161109
  Serious: Yes (Other)
  Sender: FDA-Public Use
  Company Number: IE-AMGEN-IRLSP2016100146

PATIENT
  Age: 48 Year
  Sex: Female

DRUGS (1)
  1. ENBREL [Suspect]
     Active Substance: ETANERCEPT
     Indication: PSORIATIC ARTHROPATHY
     Dosage: 50 MG, UNK
     Route: 058
     Dates: start: 20160419

REACTIONS (8)
  - Eye disorder [Unknown]
  - Suicidal ideation [Unknown]
  - Depressed mood [Recovering/Resolving]
  - Skin irritation [Unknown]
  - Pain of skin [Unknown]
  - Amenorrhoea [Unknown]
  - Hot flush [Unknown]
  - Dry eye [Unknown]

NARRATIVE: CASE EVENT DATE: 2016
